FAERS Safety Report 4712853-8 (Version None)
Quarter: 2005Q3

REPORT INFORMATION
  Report Type: 
  Country: None (occurrence: None)
  Receive Date: 20050712
  Receipt Date: 20050712
  Transmission Date: 20060218
  Serious: Yes (Hospitalization)
  Sender: FDA-Public Use
  Company Number: None

PATIENT
  Sex: Male

DRUGS (16)
  1. CLOPIDOGREL 75 MG [Suspect]
     Indication: PAPILLITIS
     Dosage: 75 MG DAILY ORAL
     Route: 048
     Dates: start: 20050211, end: 20050303
  2. ASPIRIN [Concomitant]
  3. BUSPIRONE [Concomitant]
  4. CALCIUM ACETATE [Concomitant]
  5. FELODIPINE [Concomitant]
  6. IBUPROFEN [Concomitant]
  7. INSULIN [Concomitant]
  8. LABETALOL [Concomitant]
  9. LEUCOVORIN [Concomitant]
  10. MINOXIDIL [Concomitant]
  11. NEPHROCAP [Concomitant]
  12. OMEPRAZOLE [Concomitant]
  13. PIPERACILLIN/TAZOBACTAM [Concomitant]
  14. PREDNISONE [Concomitant]
  15. TACROLIMUS [Concomitant]
  16. TRAVOPROST [Concomitant]

REACTIONS (1)
  - GASTROINTESTINAL HAEMORRHAGE [None]
